FAERS Safety Report 15604983 (Version 1)
Quarter: 2018Q4

REPORT INFORMATION
  Report Type: Spontaneous
  Country: US (occurrence: US)
  Receive Date: 20181112
  Receipt Date: 20181112
  Transmission Date: 20190205
  Serious: No
  Sender: FDA-Public Use
  Company Number: US-AMGEN-USASP2018156927

PATIENT
  Age: 61 Year
  Sex: Female

DRUGS (5)
  1. AIMOVIG [Suspect]
     Active Substance: ERENUMAB-AOOE
     Indication: MIGRAINE PROPHYLAXIS
     Dosage: 70 MG, QMO
     Route: 065
     Dates: start: 201808, end: 2018
  2. NAPROXEN. [Concomitant]
     Active Substance: NAPROXEN
     Dosage: 440 MG, UP TO TWICE A DAY
  3. AIMOVIG [Suspect]
     Active Substance: ERENUMAB-AOOE
     Dosage: 140 MG, QMO
     Route: 065
     Dates: start: 20181105
  4. BOTOX [Concomitant]
     Active Substance: ONABOTULINUMTOXINA
  5. BUTALBITAL, ACETAMINOPHEN, AND CAFFEINE [Concomitant]
     Active Substance: ACETAMINOPHEN\BUTALBITAL\CAFFEINE
     Dosage: 325/40, UPTO TWICE A DAY

REACTIONS (3)
  - Wrong technique in product usage process [Unknown]
  - Drug effect incomplete [Unknown]
  - Fatigue [Unknown]

NARRATIVE: CASE EVENT DATE: 2018
